FAERS Safety Report 16479151 (Version 1)
Quarter: 2019Q2

REPORT INFORMATION
  Report Type: Spontaneous
  Country: US (occurrence: US)
  Receive Date: 20190626
  Receipt Date: 20190626
  Transmission Date: 20190711
  Serious: Yes (Hospitalization, Other)
  Sender: FDA-Public Use
  Company Number: US-SAOL THERAPEUTICS-2018SAO01023

PATIENT
  Age: 29 Year
  Sex: Male
  Weight: 64.4 kg

DRUGS (23)
  1. SULFAMETHOXAZOLE-TRIMETHOPRIM [Concomitant]
     Active Substance: SULFAMETHOXAZOLE\TRIMETHOPRIM
  2. METHYLPHENIDATE. [Concomitant]
     Active Substance: METHYLPHENIDATE
  3. GLYCOPYRROLATE. [Concomitant]
     Active Substance: GLYCOPYRROLATE
  4. LEVETIRACETAM. [Concomitant]
     Active Substance: LEVETIRACETAM
  5. FUROSEMIDE. [Concomitant]
     Active Substance: FUROSEMIDE
  6. CLONIDINE. [Concomitant]
     Active Substance: CLONIDINE
  7. NYSTATIN. [Concomitant]
     Active Substance: NYSTATIN
  8. MUPIROCIN. [Concomitant]
     Active Substance: MUPIROCIN
  9. IPRATROPIUM BROMIDE. [Concomitant]
     Active Substance: IPRATROPIUM BROMIDE
  10. AMOXICILLIN-POT CLAVULANATE [Concomitant]
     Active Substance: AMOXICILLIN\CLAVULANATE POTASSIUM
  11. GABLOFEN [Suspect]
     Active Substance: BACLOFEN
     Route: 037
  12. LAMOTRIGINE. [Concomitant]
     Active Substance: LAMOTRIGINE
  13. BUDESONIDE. [Concomitant]
     Active Substance: BUDESONIDE
  14. ACETYLCYSTEINE. [Concomitant]
     Active Substance: ACETYLCYSTEINE
  15. BANZEL [Concomitant]
     Active Substance: RUFINAMIDE
  16. NACL [Concomitant]
     Active Substance: SODIUM CHLORIDE
  17. LIORESAL [Suspect]
     Active Substance: BACLOFEN
     Indication: MUSCLE SPASTICITY
     Dosage: 582.6 ?G, \DAY
     Route: 037
  18. LIORESAL [Suspect]
     Active Substance: BACLOFEN
     Indication: CEREBRAL PALSY
  19. AMITRIPTYLINE [Concomitant]
     Active Substance: AMITRIPTYLINE
  20. LEVALBUTEROL. [Concomitant]
     Active Substance: LEVALBUTEROL
  21. CLOTRIMAZOLE AND BETAMETHASONE DIPROPIONATE [Concomitant]
     Active Substance: BETAMETHASONE\BETAMETHASONE DIPROPIONATE\CLOTRIMAZOLE
  22. AMLODIPINE [Concomitant]
     Active Substance: AMLODIPINE BESYLATE
  23. PERFOROMIST [Concomitant]
     Active Substance: FORMOTEROL FUMARATE DIHYDRATE

REACTIONS (2)
  - Implant site erosion [Unknown]
  - Pneumonia [Unknown]

NARRATIVE: CASE EVENT DATE: 20180917
